FAERS Safety Report 15213643 (Version 6)
Quarter: 2022Q2

REPORT INFORMATION
  Report Type: Other
  Country: US (occurrence: None)
  Receive Date: 20180730
  Receipt Date: 20220521
  Transmission Date: 20220720
  Serious: Yes (Hospitalization, Other)
  Sender: FDA-Public Use
  Company Number: US-ROCHE-2159875

PATIENT
  Age: 54 Year
  Sex: Male
  Weight: 84.898 kg

DRUGS (3)
  1. OCREVUS [Suspect]
     Active Substance: OCRELIZUMAB
     Indication: Primary progressive multiple sclerosis
     Dosage: INITIAL DOSE: 300 MG
     Route: 042
     Dates: start: 20170605
  2. COVID - 19 VACCINATION (UNK INGREDIENTS) [Concomitant]
     Indication: COVID-19
     Dosage: SECOND VACCINE
     Dates: start: 202202
  3. AUBAGIO [Concomitant]
     Active Substance: TERIFLUNOMIDE

REACTIONS (11)
  - Multiple sclerosis [Unknown]
  - Sepsis [Recovered/Resolved]
  - Pneumonia [Unknown]
  - Respiratory disorder [Recovered/Resolved]
  - Bronchitis [Unknown]
  - Clostridium difficile colitis [Unknown]
  - Pyrexia [Unknown]
  - COVID-19 [Unknown]
  - Sepsis [Unknown]
  - Pneumonia [Unknown]
  - Musculoskeletal stiffness [Unknown]

NARRATIVE: CASE EVENT DATE: 20180301
